FAERS Safety Report 10602881 (Version 2)
Quarter: 2016Q4

REPORT INFORMATION
  Report Type: Spontaneous
  Country: US (occurrence: US)
  Receive Date: 20141124
  Receipt Date: 20161226
  Transmission Date: 20170206
  Serious: No
  Sender: FDA-Public Use
  Company Number: US-NOVEN-14US010474

PATIENT

DRUGS (4)
  1. MINIVELLE [Suspect]
     Active Substance: ESTRADIOL
     Indication: NIGHT SWEATS
     Dosage: 0.05MG/DAY, 2/WK
     Route: 062
     Dates: start: 201401
  2. MINIVELLE [Suspect]
     Active Substance: ESTRADIOL
     Indication: HOT FLUSH
     Dosage: 0.075 MG, UNKNOWN
     Route: 062
     Dates: start: 2013, end: 2014
  3. MINIVELLE [Suspect]
     Active Substance: ESTRADIOL
     Dosage: 0.075 MG, UNKNOWN
     Route: 062
  4. PROGESTERONE. [Concomitant]
     Active Substance: PROGESTERONE

REACTIONS (7)
  - Depressed mood [Not Recovered/Not Resolved]
  - Anxiety [Not Recovered/Not Resolved]
  - Product adhesion issue [Unknown]
  - Palpitations [Not Recovered/Not Resolved]
  - Hot flush [Not Recovered/Not Resolved]
  - Insomnia [Not Recovered/Not Resolved]
  - Blood oestrogen decreased [Not Recovered/Not Resolved]

NARRATIVE: CASE EVENT DATE: 20140913
